FAERS Safety Report 5550720-0 (Version None)
Quarter: 2007Q4

REPORT INFORMATION
  Report Type: 
  Country: None (occurrence: None)
  Receive Date: 20071212
  Receipt Date: 20041201
  Transmission Date: 20080405
  Serious: Yes (Other)
  Sender: FDA-Public Use
  Company Number: FR-JNJFOC-20071100832

PATIENT
  Age: 48 Year
  Sex: Male
  Weight: 110 kg

DRUGS (3)
  1. HALOPERIDOL [Suspect]
     Indication: SCHIZOPHRENIA, RESIDUAL TYPE
     Dosage: 101-200MG
     Route: 050
  2. ORAL HYPERGLYCAEMICS [Concomitant]
     Indication: DIABETES MELLITUS
     Route: 065
  3. LIPID LOWERING THERAPY [Concomitant]
     Indication: HYPERLIPIDAEMIA
     Route: 065

REACTIONS (1)
  - WEIGHT INCREASED [None]
